FAERS Safety Report 8999292 (Version 1)
Quarter: 2013Q1

REPORT INFORMATION
  Report Type: Spontaneous
  Country: US (occurrence: US)
  Receive Date: 20130103
  Receipt Date: 20130103
  Transmission Date: 20140127
  Serious: Yes (Hospitalization, Other)
  Sender: FDA-Public Use
  Company Number: US-TEVA-378487USA

PATIENT
  Age: 58 Year
  Sex: Male

DRUGS (5)
  1. RIBAVIRIN [Suspect]
     Indication: HEPATITIS C
     Dosage: 1200MG DAILY
     Route: 048
  2. PEGINTERFERON ALFA-2B [Suspect]
     Indication: HEPATITIS C
     Dosage: 150MCG/WEEKLY
     Route: 058
  3. VITAMIN D [Concomitant]
     Dosage: 2000IU
     Route: 065
  4. PARACETAMOL [Concomitant]
     Indication: PAIN
     Dosage: AS NEEDED
     Route: 065
  5. SILDENAFIL [Concomitant]
     Indication: ERECTILE DYSFUNCTION
     Dosage: AS NEEDED
     Route: 065

REACTIONS (2)
  - Catatonia [Recovered/Resolved]
  - Pancytopenia [Unknown]
